FAERS Safety Report 8996888 (Version 1)
Quarter: 2013Q1

REPORT INFORMATION
  Report Type: Spontaneous
  Country: FR (occurrence: FR)
  Receive Date: 20130104
  Receipt Date: 20130104
  Transmission Date: 20140127
  Serious: Yes (Hospitalization)
  Sender: FDA-Public Use
  Company Number: FR-ABBOTT-13P-056-1030145-00

PATIENT
  Age: 47 Year
  Sex: Female

DRUGS (6)
  1. DEPAKINE CHRONO [Suspect]
     Indication: EPILEPSY
     Dosage: 500 MG IN THE MORNING AND 750 MG IN EVENING
     Route: 048
     Dates: start: 20120629
  2. DEPAKINE CHRONO [Suspect]
     Route: 048
     Dates: start: 20120709
  3. CERAZETTE [Concomitant]
     Indication: PRODUCT USED FOR UNKNOWN INDICATION
  4. EFFEXOR XR [Concomitant]
     Indication: PRODUCT USED FOR UNKNOWN INDICATION
     Route: 048
  5. ELISOR [Concomitant]
     Indication: PRODUCT USED FOR UNKNOWN INDICATION
     Route: 048
  6. IMOVANE [Concomitant]
     Indication: PRODUCT USED FOR UNKNOWN INDICATION
     Route: 048

REACTIONS (7)
  - General physical health deterioration [Recovered/Resolved]
  - Altered state of consciousness [Unknown]
  - Eating disorder [Unknown]
  - Disorientation [Unknown]
  - Fall [Unknown]
  - Micturition disorder [Unknown]
  - Abnormal behaviour [Recovered/Resolved]
